FAERS Safety Report 5298311-3 (Version None)
Quarter: 2007Q2

REPORT INFORMATION
  Report Type: 
  Country: None (occurrence: None)
  Receive Date: 20070416
  Receipt Date: 20070406
  Transmission Date: 20071010
  Serious: Yes (Hospitalization, Other)
  Sender: FDA-Public Use
  Company Number: CA-ABBOTT-07P-028-0364507-00

PATIENT
  Sex: Male
  Weight: 90.7 kg

DRUGS (1)
  1. HUMIRA [Suspect]
     Indication: PSORIATIC ARTHROPATHY
     Route: 058
     Dates: start: 20060701, end: 20070305

REACTIONS (2)
  - INCISION SITE INFECTION [None]
  - VASCULAR BYPASS GRAFT [None]
